FAERS Safety Report 6709319-2 (Version None)
Quarter: 2010Q2

REPORT INFORMATION
  Report Type: 
  Country: None (occurrence: None)
  Receive Date: 20100504
  Receipt Date: 20090303
  Transmission Date: 20101027
  Serious: Yes (Other)
  Sender: FDA-Public Use
  Company Number: US-BAYER-200812527BCC

PATIENT
  Age: 65 Year
  Sex: Female
  Weight: 59 kg

DRUGS (16)
  1. PHILLIPS MILK OF MAGNESIA CLASSIC MINT [Suspect]
     Indication: CONSTIPATION
     Dosage: BOTTLE SIZE 26 OUNCE - 4.5 TSP DAILY
     Dates: start: 20010101
  2. PHILLIPS MILK OF MAGNESIA ORIGINAL [Suspect]
     Indication: CONSTIPATION
     Dosage: BOTTLE SIZE 26 OUNCE - 4.5 TSP DAILY
     Dates: start: 20010101
  3. POTASSIUM [Concomitant]
  4. PREMARIN [Concomitant]
  5. RHINOCORT [Concomitant]
  6. VAGISTAT [Concomitant]
  7. MUCINEX [Concomitant]
  8. DIAZEPAM [Concomitant]
  9. DILANTIN [Concomitant]
  10. ALBUTEROL [Concomitant]
  11. DARVOCET [Concomitant]
  12. SPRING VALLER CALCIUM [Concomitant]
  13. VITAMIN C [Concomitant]
  14. VITAMIN E [Concomitant]
  15. ONE A DAY WOMEN'S VITAMINS [Concomitant]
  16. NEXIUM [Concomitant]

REACTIONS (1)
  - DRUG DEPENDENCE [None]
